FAERS Safety Report 7497430-0 (Version None)
Quarter: 2011Q2

REPORT INFORMATION
  Report Type: 
  Country: None (occurrence: None)
  Receive Date: 20110516
  Receipt Date: 20110504
  Transmission Date: 20111010
  Serious: Yes (Other)
  Sender: FDA-Public Use
  Company Number: 2011SP019825

PATIENT
  Age: 23 Year
  Sex: Female

DRUGS (1)
  1. MERCILON (DESOGESTREL /ETHINYLESTRADIOL /00570801/) [Suspect]
     Indication: CONTRACEPTION
     Dates: start: 20080101

REACTIONS (5)
  - DYSPAREUNIA [None]
  - ALCOHOL USE [None]
  - ABDOMINAL PAIN [None]
  - SWELLING [None]
  - STRESS [None]
